FAERS Safety Report 8972447 (Version 1)
Quarter: 2012Q4

REPORT INFORMATION
  Report Type: 
  Country: TR (occurrence: TR)
  Receive Date: 20121218
  Receipt Date: 20121218
  Transmission Date: 20130627
  Serious: Yes (Other)
  Sender: FDA-Public Use
  Company Number: TR-ROXANE LABORATORIES, INC.-2012-RO-02592RO

PATIENT
  Age: 26 Year
  Sex: Male

DRUGS (7)
  1. LITHIUM CARBONATE [Suspect]
     Indication: BIPOLAR DISORDER
     Dosage: 1500 mg
  2. QUETIAPINE FUMARATE [Suspect]
     Indication: BIPOLAR DISORDER
     Dosage: 200 mg
  3. QUETIAPINE FUMARATE [Suspect]
     Dosage: 400 mg
  4. RISPERIDONE [Suspect]
     Indication: BIPOLAR DISORDER
  5. VALPROIC ACID [Suspect]
     Indication: BIPOLAR DISORDER
  6. VALPROIC ACID [Suspect]
     Dosage: 20 mg
  7. OLANZAPINE [Suspect]
     Indication: BIPOLAR DISORDER

REACTIONS (2)
  - Blood creatine phosphokinase increased [Recovered/Resolved]
  - Hepatic enzyme increased [Recovered/Resolved]
